FAERS Safety Report 8163634-7 (Version None)
Quarter: 2012Q1

REPORT INFORMATION
  Report Type: 
  Country: None (occurrence: None)
  Receive Date: 20120221
  Receipt Date: 20120214
  Transmission Date: 20120608
  Serious: Yes (Hospitalization)
  Sender: FDA-Public Use
  Company Number: 2012SPP005622

PATIENT
  Sex: Female

DRUGS (2)
  1. PEGATRON (PEGYLATED INTERFERON ALFA-2B W/RIBAVIRIN) [Suspect]
     Indication: PRODUCT USED FOR UNKNOWN INDICATION
  2. LERCANIDIPINE [Suspect]
     Indication: PRODUCT USED FOR UNKNOWN INDICATION

REACTIONS (6)
  - BLOOD COUNT ABNORMAL [None]
  - FATIGUE [None]
  - GINGIVAL BLEEDING [None]
  - ALOPECIA [None]
  - FALL [None]
  - MOUTH ULCERATION [None]
